FAERS Safety Report 9841464 (Version 1)
Quarter: 2013Q4

REPORT INFORMATION
  Report Type: Spontaneous
  Country: US (occurrence: None)
  Receive Date: 20131211
  Receipt Date: 20131211
  Transmission Date: 20140711
  Serious: Yes (Hospitalization)
  Sender: FDA-Public Use
  Company Number: ALL1-2012-01565

PATIENT
  Age: 54 Year
  Sex: Female
  Weight: 107 kg

DRUGS (15)
  1. ADDERALL XR [Suspect]
     Indication: ASTHENIA
     Dosage: 30 MG, 1X/DAY:QD IN AM, ORAL
     Route: 048
     Dates: start: 2001, end: 20120107
  2. ADDERALL XR [Suspect]
     Indication: ASTHENIA
     Dosage: 30 MG, 1X/DAY:QD IN AM, ORAL
     Route: 048
     Dates: start: 2001, end: 20120107
  3. CYMBALTA(DULOXETINE HYDROCHLORIDE) [Concomitant]
  4. DIOVAN(VALSARTAN) [Concomitant]
  5. AMLODIPINE(AMLODIPINE) [Concomitant]
  6. SPIRONOLACTONE(SPIRONOLACTAONE) [Concomitant]
  7. KLOR-CON(POTASSIUM CHLORIDE) [Concomitant]
  8. MAGNESIUM CHLORIDE(MAGNESIUM CHLORIDE ANHYDROUS) [Concomitant]
  9. LOVASTATIN(LOVASTATIN) [Concomitant]
  10. BONIVA(IBANDRONATE SODIUM) [Concomitant]
  11. IBUPROFEN(IBUPROFEN) [Concomitant]
  12. LEVOXYL(LEVOTHYROXINE SODIUM) [Concomitant]
  13. PREMPTRO(ESTROGENS CONJUGATED, MEDROXYPROGESTERONE ACETATE) [Concomitant]
  14. TRIAZOLAM(TRIAZOLAM) [Concomitant]
  15. XANAZ(ALPRAZOLAM) [Concomitant]

REACTIONS (4)
  - Depression [None]
  - Glucose tolerance impaired [None]
  - Blood glucose abnormal [None]
  - Muscle atrophy [None]
